FAERS Safety Report 23720367 (Version 2)
Quarter: 2025Q1

REPORT INFORMATION
  Report Type: Report from Study
  Country: US (occurrence: US)
  Receive Date: 20240408
  Receipt Date: 20250307
  Transmission Date: 20250409
  Serious: Yes (Hospitalization)
  Sender: BAUSCH AND LOMB
  Company Number: US-BAUSCH-BL-2024-005560

PATIENT
  Age: 46 Year
  Sex: Female

DRUGS (1)
  1. XIFAXAN [Suspect]
     Active Substance: RIFAXIMIN
     Indication: Hepatic encephalopathy
     Route: 048

REACTIONS (4)
  - Hospitalisation [Unknown]
  - Therapy interrupted [Unknown]
  - Inability to afford medication [Unknown]
  - Insurance issue [Unknown]
